FAERS Safety Report 20101388 (Version 1)
Quarter: 2021Q4

REPORT INFORMATION
  Report Type: Spontaneous
  Country: US (occurrence: US)
  Receive Date: 20211123
  Receipt Date: 20211123
  Transmission Date: 20220303
  Serious: No
  Sender: FDA-Public Use
  Company Number: US-009507513-2111USA006107

PATIENT
  Age: 38 Year
  Sex: Female

DRUGS (4)
  1. TEMODAR [Suspect]
     Active Substance: TEMOZOLOMIDE
     Indication: Pineal neoplasm
     Dosage: 5-DAY FOR 3 TO 4 CYCLES
     Route: 048
  2. TEMODAR [Suspect]
     Active Substance: TEMOZOLOMIDE
     Dosage: 200 MILLIGRAM/SQ. METER FOR 12 CYLES
     Route: 048
  3. TEMODAR [Suspect]
     Active Substance: TEMOZOLOMIDE
     Dosage: 50 MILLIGRAM/SQ. METER
     Route: 048
  4. TEMODAR [Suspect]
     Active Substance: TEMOZOLOMIDE
     Dosage: AN 80% REDUCED DOSE
     Route: 048
     Dates: end: 201103

REACTIONS (5)
  - Fatigue [Unknown]
  - Nausea [Unknown]
  - Incorrect dose administered [Unknown]
  - Off label use [Unknown]
  - Product dose omission issue [Unknown]
